FAERS Safety Report 8096944-2 (Version None)
Quarter: 2012Q1

REPORT INFORMATION
  Report Type: 
  Country: None (occurrence: None)
  Receive Date: 20120129
  Receipt Date: 20111205
  Transmission Date: 20120608
  Serious: No
  Sender: FDA-Public Use
  Company Number: US-ABBOTT-11P-163-0880758-00

PATIENT
  Age: 45 Year
  Sex: Male

DRUGS (1)
  1. HUMIRA [Suspect]
     Indication: PSORIATIC ARTHROPATHY
     Dates: start: 20090101

REACTIONS (6)
  - FATIGUE [None]
  - BLOOD CHOLESTEROL INCREASED [None]
  - NASOPHARYNGITIS [None]
  - EYE DISORDER [None]
  - DYSPNOEA [None]
  - ARTHRALGIA [None]
